FAERS Safety Report 15526627 (Version 2)
Quarter: 2018Q4

REPORT INFORMATION
  Report Type: Spontaneous
  Country: FR (occurrence: FR)
  Receive Date: 20181018
  Receipt Date: 20181024
  Transmission Date: 20190205
  Serious: Yes (Other)
  Sender: FDA-Public Use
  Company Number: FR-ACORDA-ACO_154764_2018

PATIENT
  Age: 49 Year
  Sex: Female
  Weight: 63 kg

DRUGS (5)
  1. CYMBALTA [Concomitant]
     Active Substance: DULOXETINE HYDROCHLORIDE
     Indication: PRODUCT USED FOR UNKNOWN INDICATION
     Dosage: 60 MG, 1 DOSAGE FORM, QD
     Route: 048
     Dates: start: 20180802, end: 201809
  2. NEURONTIN [Concomitant]
     Active Substance: GABAPENTIN
     Indication: PRODUCT USED FOR UNKNOWN INDICATION
     Dosage: 300 MG, 2 DOSAGE FORM, QD
     Route: 048
     Dates: start: 20180529, end: 201809
  3. CONTRAMAL [Concomitant]
     Active Substance: TRAMADOL HYDROCHLORIDE
     Indication: PRODUCT USED FOR UNKNOWN INDICATION
     Dosage: 50 MG, 1 TO 4 DF DAILY IF PAIN
     Route: 048
     Dates: start: 20180802
  4. QUTENZA [Suspect]
     Active Substance: CAPSAICIN
     Dosage: 1 DF, 1/DAY
     Route: 003
     Dates: start: 20180802, end: 20180802
  5. QUTENZA [Suspect]
     Active Substance: CAPSAICIN
     Indication: NEURALGIA
     Dosage: 1 DF, 1/DAY
     Route: 003
     Dates: start: 20180607, end: 20180607

REACTIONS (5)
  - Burns second degree [Not Recovered/Not Resolved]
  - Pain [Not Recovered/Not Resolved]
  - Burning sensation [Recovered/Resolved]
  - Blister [Not Recovered/Not Resolved]
  - Scar [Unknown]

NARRATIVE: CASE EVENT DATE: 20180607
